FAERS Safety Report 15622168 (Version 4)
Quarter: 2019Q4

REPORT INFORMATION
  Report Type: Spontaneous
  Country: JP (occurrence: JP)
  Receive Date: 20181115
  Receipt Date: 20191108
  Transmission Date: 20200122
  Serious: Yes (Hospitalization)
  Sender: FDA-Public Use
  Company Number: JP-ASTRAZENECA-2018SF49835

PATIENT
  Age: 84 Year
  Sex: Female
  Weight: 65.1 kg

DRUGS (8)
  1. URSODEOXYCHOLIC ACID [Concomitant]
     Active Substance: URSODIOL
     Dosage: 2
     Dates: start: 20110425
  2. BEZATOL [Concomitant]
     Active Substance: BEZAFIBRATE
     Dates: start: 20180804
  3. CRESTOR [Concomitant]
     Active Substance: ROSUVASTATIN CALCIUM
     Dates: start: 20100610
  4. SAIREITO [Suspect]
     Active Substance: HERBALS
     Indication: OEDEMA PERIPHERAL
     Route: 048
     Dates: start: 20180609, end: 20181029
  5. REZALTAS [Concomitant]
     Active Substance: AZELNIDIPINE\OLMESARTAN MEDOXOMIL
     Dates: start: 20101221
  6. ONGLYZA [Suspect]
     Active Substance: SAXAGLIPTIN HYDROCHLORIDE
     Indication: TYPE 2 DIABETES MELLITUS
     Route: 048
     Dates: start: 20180609
  7. TAKEPRON [Concomitant]
     Active Substance: LANSOPRAZOLE
     Dates: start: 20090521
  8. BONVIVA [Concomitant]
     Active Substance: IBANDRONATE SODIUM
     Dates: start: 20150623

REACTIONS (1)
  - Interstitial lung disease [Recovering/Resolving]

NARRATIVE: CASE EVENT DATE: 20181029
